FAERS Safety Report 8829615 (Version 2)
Quarter: 2014Q3

REPORT INFORMATION
  Report Type: Report from Study
  Country: US (occurrence: US)
  Receive Date: 20121008
  Receipt Date: 20140825
  Transmission Date: 20150326
  Serious: Yes (Hospitalization)
  Sender: FDA-Public Use
  Company Number: US-ROCHE-1131607

PATIENT
  Sex: Female
  Weight: 65 kg

DRUGS (2)
  1. RITUXAN [Suspect]
     Active Substance: RITUXIMAB
     Indication: HAEMOLYTIC ANAEMIA
     Route: 065
     Dates: start: 20080717
  2. RITUXAN [Suspect]
     Active Substance: RITUXIMAB
     Indication: AUTOIMMUNE HAEMOLYTIC ANAEMIA

REACTIONS (19)
  - Arthralgia [Unknown]
  - Myalgia [Unknown]
  - Chest pain [Unknown]
  - Pulmonary hypertension [Unknown]
  - Dizziness [Unknown]
  - Fatigue [Unknown]
  - Dyspepsia [Unknown]
  - Irritability [Unknown]
  - Haemolytic anaemia [Unknown]
  - Cold type haemolytic anaemia [Unknown]
  - Diarrhoea [Unknown]
  - Decreased appetite [Unknown]
  - Dyspnoea [Unknown]
  - Headache [Unknown]
  - Back pain [Unknown]
  - Off label use [Unknown]
  - Regurgitation [Unknown]
  - Joint swelling [Unknown]
  - Pollakiuria [Unknown]
